FAERS Safety Report 21739424 (Version 4)
Quarter: 2023Q1

REPORT INFORMATION
  Report Type: Spontaneous
  Country: US (occurrence: US)
  Receive Date: 20221216
  Receipt Date: 20230126
  Transmission Date: 20230417
  Serious: Yes (Hospitalization)
  Sender: FDA-Public Use
  Company Number: US-AUROBINDO-AUR-APL-2022-052573

PATIENT
  Age: 65 Year
  Sex: Female
  Weight: 74 kg

DRUGS (5)
  1. ALENDRONATE SODIUM [Suspect]
     Active Substance: ALENDRONATE SODIUM
     Indication: Osteoporosis
     Dosage: 70 MILLIGRAM (ONCE WEEKLY)
     Route: 048
     Dates: start: 20221122, end: 20221129
  2. ALENDRONATE SODIUM [Suspect]
     Active Substance: ALENDRONATE SODIUM
     Dosage: UNK
     Route: 065
     Dates: start: 20221129, end: 20221202
  3. NAPROXEN [Concomitant]
     Active Substance: NAPROXEN
     Indication: Abdominal pain upper
     Dosage: 500 MILLIGRAM, ONCE A DAY
     Route: 065
  4. PRILOSEC [Concomitant]
     Active Substance: OMEPRAZOLE MAGNESIUM
     Indication: Abdominal pain upper
     Dosage: UNK
     Route: 065
  5. FLUTICASONE PROPIONATE [Concomitant]
     Active Substance: FLUTICASONE PROPIONATE
     Indication: Product used for unknown indication
     Dosage: UNK (TWO SPRAYS EACH NOSTRIL DAILY)
     Route: 065

REACTIONS (3)
  - Myalgia [Recovered/Resolved]
  - Pain [Recovered/Resolved]
  - Hypokinesia [Recovered/Resolved]

NARRATIVE: CASE EVENT DATE: 20221129
